FAERS Safety Report 9207084 (Version 1)
Quarter: 2013Q2

REPORT INFORMATION
  Report Type: Spontaneous
  Country: US (occurrence: US)
  Receive Date: 20130403
  Receipt Date: 20130403
  Transmission Date: 20140414
  Serious: Yes (Death)
  Sender: FDA-Public Use
  Company Number: PHEH2013US007603

PATIENT
  Age: 58 Year
  Sex: Female

DRUGS (9)
  1. GLEEVEC [Suspect]
     Indication: CHRONIC MYELOID LEUKAEMIA
     Dosage: 400 MG, DAILY
     Route: 048
     Dates: start: 20090422, end: 201002
  2. RITALIN [Concomitant]
  3. ONDASETRON [Concomitant]
  4. ADVAIR [Concomitant]
  5. GABAPENTIN [Concomitant]
  6. CLONAZEPAM [Concomitant]
  7. PYRIDOSTIGMINE [Concomitant]
  8. FLUDROCORTISONE [Concomitant]
  9. PRILOSEC [Concomitant]

REACTIONS (1)
  - Death [Fatal]
